FAERS Safety Report 9319954 (Version 1)
Quarter: 2013Q2

REPORT INFORMATION
  Report Type: Report from Study
  Country: US (occurrence: US)
  Receive Date: 20130530
  Receipt Date: 20130530
  Transmission Date: 20140414
  Serious: Yes (Other)
  Sender: FDA-Public Use
  Company Number: US-JNJFOC-20130516435

PATIENT
  Sex: Female
  Weight: 64.86 kg

DRUGS (12)
  1. SIMPONI [Suspect]
     Indication: PSORIATIC ARTHROPATHY
     Route: 058
     Dates: start: 201209, end: 201305
  2. SIMPONI [Suspect]
     Indication: PSORIASIS
     Route: 058
     Dates: start: 201209, end: 201305
  3. LEFLUNOMIDE [Concomitant]
     Indication: PSORIATIC ARTHROPATHY
     Route: 048
  4. CRESTOR [Concomitant]
     Indication: BLOOD CHOLESTEROL INCREASED
     Route: 048
  5. CITALOPRAM [Concomitant]
     Indication: SLEEP DISORDER
     Route: 048
  6. ENALAPRIL [Concomitant]
     Indication: HYPERTENSION
     Dosage: 10-25MG ONCE A DAY
     Route: 048
  7. LORATADINE [Concomitant]
  8. MULTIVITAMINS [Concomitant]
  9. CALCIUM CITRATE AND VITAMIN D [Concomitant]
  10. VITAMIN B COMPLEX [Concomitant]
  11. VITAMIN D3 [Concomitant]
  12. FOLIC ACID [Concomitant]

REACTIONS (9)
  - Deafness unilateral [Recovered/Resolved]
  - Infection [Recovered/Resolved]
  - Bronchitis [Recovered/Resolved]
  - Ear infection [Recovered/Resolved]
  - Laryngitis [Recovered/Resolved]
  - Sinusitis [Recovered/Resolved]
  - Pyrexia [Recovered/Resolved]
  - Pain [Recovered/Resolved]
  - Malaise [Recovering/Resolving]
